FAERS Safety Report 16071708 (Version 1)
Quarter: 2019Q1

REPORT INFORMATION
  Report Type: Report from Study
  Country: US (occurrence: US)
  Receive Date: 20190314
  Receipt Date: 20190314
  Transmission Date: 20190418
  Serious: Yes (Hospitalization)
  Sender: FDA-Public Use
  Company Number: US-EISAI MEDICAL RESEARCH-EC-2018-049299

PATIENT
  Age: 58 Year
  Sex: Female
  Weight: 53.52 kg

DRUGS (42)
  1. ZANTAC [Concomitant]
     Active Substance: RANITIDINE HYDROCHLORIDE
  2. DICYCLOMINE HCL [Concomitant]
     Active Substance: DICYCLOMINE HYDROCHLORIDE
  3. GABAPENTIN. [Concomitant]
     Active Substance: GABAPENTIN
  4. ALPRAZOLAM. [Concomitant]
     Active Substance: ALPRAZOLAM
  5. HYDROCODONE-ACETAMINOPHEN [Concomitant]
     Active Substance: ACETAMINOPHEN\HYDROCODONE
  6. LENVIMA [Suspect]
     Active Substance: LENVATINIB
     Route: 048
     Dates: start: 201901, end: 2019
  7. TURMERIC [Concomitant]
     Active Substance: HERBALS\TURMERIC
  8. SULFAMETHOXAZOLE [Concomitant]
     Active Substance: SULFAMETHOXAZOLE
  9. BUSPIRONE HCL [Concomitant]
     Active Substance: BUSPIRONE HYDROCHLORIDE
  10. CABOMETYX [Concomitant]
     Active Substance: CABOZANTINIB S-MALATE
  11. FUROSEMIDE. [Concomitant]
     Active Substance: FUROSEMIDE
  12. METHYLPREDNISOLONE. [Concomitant]
     Active Substance: METHYLPREDNISOLONE
  13. LORAZEPAM. [Concomitant]
     Active Substance: LORAZEPAM
  14. OXYBUTYNIN CHLORIDE. [Concomitant]
     Active Substance: OXYBUTYNIN CHLORIDE
  15. METOCLOPRAMIDE HCL [Concomitant]
     Active Substance: METOCLOPRAMIDE HYDROCHLORIDE
  16. REGENECARE HA [Concomitant]
     Active Substance: LIDOCAINE HYDROCHLORIDE
  17. MORPHINE [Concomitant]
     Active Substance: MORPHINE
  18. GAS-X [Concomitant]
     Active Substance: DIMETHICONE
  19. PROCHLORPERAZINE. [Concomitant]
     Active Substance: PROCHLORPERAZINE
  20. LEVOTHYROXINE SODIUM. [Concomitant]
     Active Substance: LEVOTHYROXINE SODIUM
  21. SPIRONOLACTONE. [Concomitant]
     Active Substance: SPIRONOLACTONE
  22. ONDANSETRON [Concomitant]
     Active Substance: ONDANSETRON
  23. MORPHINE SULFATE. [Concomitant]
     Active Substance: MORPHINE SULFATE
  24. TERCONAZOLE. [Concomitant]
     Active Substance: TERCONAZOLE
  25. POLYETHYLENE GLYCOL [Concomitant]
     Active Substance: POLYETHYLENE GLYCOLS
  26. XANAX [Concomitant]
     Active Substance: ALPRAZOLAM
  27. LENVIMA [Suspect]
     Active Substance: LENVATINIB
     Indication: RENAL CANCER
     Route: 048
     Dates: start: 20181127, end: 20190101
  28. IMODIUM [Concomitant]
     Active Substance: LOPERAMIDE HYDROCHLORIDE
  29. METRONIDAZOLE. [Concomitant]
     Active Substance: METRONIDAZOLE
  30. FLUCONAZOLE. [Concomitant]
     Active Substance: FLUCONAZOLE
  31. METHADONE HCL [Concomitant]
     Active Substance: METHADONE HYDROCHLORIDE
  32. SLOW-MAG [Concomitant]
     Active Substance: MAGNESIUM CHLORIDE
  33. IRON [Concomitant]
     Active Substance: IRON
  34. AFINITOR [Concomitant]
     Active Substance: EVEROLIMUS
  35. HYDROMORPHONE HCL [Concomitant]
     Active Substance: HYDROMORPHONE HYDROCHLORIDE
  36. SENNA LAXATIVE [Concomitant]
     Active Substance: SENNOSIDES
  37. NITROFURANTOIN. [Concomitant]
     Active Substance: NITROFURANTOIN
  38. OLANZAPINE. [Concomitant]
     Active Substance: OLANZAPINE
  39. LENVIMA [Suspect]
     Active Substance: LENVATINIB
     Route: 048
     Dates: start: 2019
  40. CLONAZEPAM. [Concomitant]
     Active Substance: CLONAZEPAM
  41. BANOPHEN [Concomitant]
     Active Substance: DIPHENHYDRAMINE HYDROCHLORIDE
  42. MOVANTIK [Concomitant]
     Active Substance: NALOXEGOL OXALATE

REACTIONS (14)
  - Blister [Unknown]
  - Nausea [Unknown]
  - Abdominal discomfort [Unknown]
  - Diarrhoea [Unknown]
  - Burning sensation [Unknown]
  - Diarrhoea [Unknown]
  - Nausea [Unknown]
  - Hypertension [Recovered/Resolved]
  - Pain [Unknown]
  - Constipation [Unknown]
  - Dizziness [Unknown]
  - Hypoaesthesia [Unknown]
  - Dehydration [Unknown]
  - Abdominal pain upper [Unknown]

NARRATIVE: CASE EVENT DATE: 201812
